FAERS Safety Report 8909177 (Version 1)
Quarter: 2012Q4

REPORT INFORMATION
  Report Type: Spontaneous
  Country: US (occurrence: None)
  Receive Date: 20121113
  Receipt Date: 20121113
  Transmission Date: 20130627
  Serious: No
  Sender: FDA-Public Use
  Company Number: None

PATIENT
  Age: 40 Year
  Sex: Female

DRUGS (2)
  1. BACTRIM [Suspect]
     Dates: start: 20100615, end: 20100619
  2. DOXYCYCLINE [Suspect]
     Dates: start: 20100617, end: 20100619

REACTIONS (8)
  - Pyrexia [None]
  - Rash [None]
  - Nausea [None]
  - Vomiting [None]
  - Headache [None]
  - Fatigue [None]
  - Cholestasis [None]
  - Hepatic steatosis [None]
